FAERS Safety Report 4950282-2 (Version None)
Quarter: 2006Q1

REPORT INFORMATION
  Report Type: 
  Country: None (occurrence: None)
  Receive Date: 20060322
  Receipt Date: 20060314
  Transmission Date: 20060701
  Serious: Yes (Hospitalization)
  Sender: FDA-Public Use
  Company Number: FR-AVENTIS-200610986FR

PATIENT
  Age: 55 Year
  Sex: Male

DRUGS (2)
  1. SPIRAMYCINE METRONIDAZOLE [Suspect]
     Indication: TOOTH INFECTION
     Dosage: DOSE: 1 TABLET (SPIRAMYCIN: 1.5 M IU AND METRONIDAZOLE: 250 MG)
     Route: 048
     Dates: start: 20060313, end: 20060313
  2. BIRODOGYL [Concomitant]
     Indication: TOOTH INFECTION
     Dosage: DOSE: 1 TABLET (SPIRAMYCIN: 1.5 M IU AND METRONIDAZOLE: 250 MG)
     Route: 048
     Dates: start: 20060101, end: 20060301

REACTIONS (2)
  - ERYTHEMA [None]
  - GENERALISED OEDEMA [None]
